FAERS Safety Report 19056163 (Version 1)
Quarter: 2021Q1

REPORT INFORMATION
  Report Type: Spontaneous
  Country: TR (occurrence: TR)
  Receive Date: 20210325
  Receipt Date: 20210325
  Transmission Date: 20210420
  Serious: Yes (Hospitalization)
  Sender: FDA-Public Use
  Company Number: TR-SUN PHARMACEUTICAL INDUSTRIES LTD-2021RR-287668

PATIENT
  Age: 31 Year
  Sex: Female

DRUGS (3)
  1. IBUPROFEN. [Concomitant]
     Active Substance: IBUPROFEN
     Indication: PERICARDITIS
     Dosage: 200 MILLIGRAM, BID
     Route: 065
  2. LANSOPRAZOLE. [Suspect]
     Active Substance: LANSOPRAZOLE
     Indication: PERICARDITIS
     Dosage: 30 MILLIGRAM, BID
     Route: 065
  3. COLCHIUM DISPERT [Concomitant]
     Indication: PERICARDITIS
     Dosage: 0.5 MILLIGRAM, TID
     Route: 065

REACTIONS (1)
  - Hyponatraemia [Unknown]
